FAERS Safety Report 9368927 (Version 1)
Quarter: 2013Q2

REPORT INFORMATION
  Report Type: Spontaneous
  Country: IT (occurrence: None)
  Receive Date: 20130621
  Receipt Date: 20130621
  Transmission Date: 20140414
  Serious: Yes (Hospitalization)
  Sender: FDA-Public Use
  Company Number: IPC201306-000235

PATIENT
  Age: 66 Year
  Sex: Female

DRUGS (1)
  1. METFORMIN HYDROCHLORIDE [Suspect]
     Indication: DIABETES MELLITUS

REACTIONS (10)
  - Drug level increased [None]
  - Cardiac arrest [None]
  - Metabolic acidosis [None]
  - Diarrhoea [None]
  - Vomiting [None]
  - Abdominal pain [None]
  - Anuria [None]
  - Polyuria [None]
  - Continuous haemodiafiltration [None]
  - Renal failure acute [None]
